FAERS Safety Report 23192875 (Version 1)
Quarter: 2023Q4

REPORT INFORMATION
  Report Type: Spontaneous
  Country: NL (occurrence: NL)
  Receive Date: 20231116
  Receipt Date: 20231116
  Transmission Date: 20240109
  Serious: Yes (Disabling, Other)
  Sender: FDA-Public Use
  Company Number: None

PATIENT
  Age: 44 Year
  Sex: Female
  Weight: 60 kg

DRUGS (2)
  1. VENLAFAXINE [Suspect]
     Active Substance: VENLAFAXINE HYDROCHLORIDE
     Indication: Insomnia
     Dosage: 75 MILLIGRAM, QD, 1X PER DAY 1 PIECE
     Route: 065
     Dates: start: 20200201
  2. DICLOFENAC POTASSIUM [Concomitant]
     Active Substance: DICLOFENAC POTASSIUM
     Dosage: COATED TABLET, 50 MG (MILLIGRAM)
     Route: 065

REACTIONS (12)
  - Neck pain [Unknown]
  - Headache [Unknown]
  - Poor quality sleep [Unknown]
  - Head discomfort [Recovering/Resolving]
  - Taste disorder [Recovered/Resolved]
  - Feeling hot [Recovering/Resolving]
  - Restlessness [Recovering/Resolving]
  - Condition aggravated [Unknown]
  - Tremor [Recovering/Resolving]
  - Withdrawal syndrome [Not Recovered/Not Resolved]
  - Nausea [Recovered/Resolved]
  - Decreased appetite [Recovered/Resolved]
